FAERS Safety Report 22359863 (Version 1)
Quarter: 2023Q2

REPORT INFORMATION
  Report Type: Spontaneous
  Country: US (occurrence: None)
  Receive Date: 20230524
  Receipt Date: 20230524
  Transmission Date: 20230721
  Serious: No
  Sender: FDA-Public Use
  Company Number: None

PATIENT
  Age: 9 Year
  Sex: Male
  Weight: 43.2 kg

DRUGS (6)
  1. PREDNISOLONE SODIUM PHOSPHATE ORAL SOLUTION [Suspect]
     Active Substance: PREDNISOLONE SODIUM PHOSPHATE
     Indication: Asthma
     Dosage: OTHER QUANTITY : 5 ML;?
     Route: 048
     Dates: start: 20230412, end: 20230419
  2. MONTELUKAST [Concomitant]
     Active Substance: MONTELUKAST SODIUM
  3. ALBUTEROL INLALER [Concomitant]
  4. DULERRA INHALER [Concomitant]
  5. ALBUTEROL WITH NEBULIZIER [Concomitant]
  6. CGHILDREN^S 12 HR ALLEGRA [Concomitant]

REACTIONS (4)
  - Headache [None]
  - Diarrhoea [None]
  - Recalled product administered [None]
  - No reaction on previous exposure to drug [None]

NARRATIVE: CASE EVENT DATE: 20230512
